FAERS Safety Report 8539667-5 (Version None)
Quarter: 2012Q3

REPORT INFORMATION
  Report Type: 
  Country: None (occurrence: None)
  Receive Date: 20120726
  Receipt Date: 20110720
  Transmission Date: 20120928
  Serious: No
  Sender: FDA-Public Use
  Company Number: US-ASTRAZENECA-2008UW01425

PATIENT
  Age: 505 Month
  Sex: Female
  Weight: 90.7 kg

DRUGS (36)
  1. SEROQUEL [Suspect]
     Dosage: 300 MG,DISPENSED
     Route: 048
     Dates: start: 20051114
  2. AMBIEN CR [Concomitant]
     Dosage: 12.5 MG, DISPENSED
     Dates: start: 20071010
  3. NEXIUM [Concomitant]
     Dosage: 40 MG,DISPENSED
     Dates: start: 20051012
  4. TOPROL-XL [Concomitant]
     Dates: start: 20050404
  5. SEROQUEL [Suspect]
     Indication: DEPRESSION
     Route: 048
     Dates: start: 20000101
  6. SEROQUEL [Suspect]
     Dosage: 300 MG,DISPENSED
     Route: 048
     Dates: start: 20051114
  7. DIOVAN [Concomitant]
     Dosage: 160 MG,DISPENSED
     Dates: start: 20071218
  8. TERAZOSIN HYDROCHLORIDE [Concomitant]
     Dosage: 2 MG,DISPENSED
     Dates: start: 20071218
  9. PREVACID [Concomitant]
     Dosage: 30 MG,DISPENSED
     Dates: start: 20071230
  10. CLONAZEPAM [Concomitant]
     Dosage: 1 MG,DISPENSED
     Dates: start: 20050912
  11. CLONAZEPAM [Concomitant]
     Dates: start: 20050404
  12. MIRTAZAPINE [Concomitant]
     Dosage: 45 MG,DISPENSED
     Dates: start: 20070911
  13. METOCLOPRAM [Concomitant]
     Dosage: 5-10 MG,DISPENSED
     Dates: start: 20050912
  14. AMLODIPINE [Concomitant]
     Dosage: 10 MG,DISPENSED
     Dates: start: 20071222
  15. IMIPRAM HCL [Concomitant]
     Dosage: 50 MG,DISPENSED
     Dates: start: 20070911
  16. LIPITOR [Concomitant]
     Dosage: 10 MG,DISPENSED
     Dates: start: 20051012
  17. SEROQUEL [Suspect]
     Route: 048
     Dates: start: 20050404
  18. GEODON [Concomitant]
     Dates: start: 20060101
  19. TIZANIDINE HYDROCHLORIDE [Concomitant]
     Dosage: 4 MG,DISPENSED
     Dates: start: 20050912
  20. NIFEDIPIN ER (XL) [Concomitant]
     Dosage: 30-60 MG,DISPENSED
     Dates: start: 20051012
  21. METOPROLOL SUCCINATE [Concomitant]
     Dosage: 100 MG,DISPENSED
     Dates: start: 20071218
  22. LEXAPRO [Concomitant]
     Dates: start: 20050404
  23. LEXAPRO [Concomitant]
     Dosage: 10-20 MG,DISPENSED
     Dates: start: 20071218
  24. WELLBUTRIN XL [Concomitant]
     Dates: start: 20050404
  25. ZANAFLEX [Concomitant]
     Dates: start: 20050404
  26. SEROQUEL [Suspect]
     Route: 048
     Dates: start: 20050404
  27. ONDANSETRON [Concomitant]
     Dosage: 40 MG,DISPENSED
     Dates: start: 20071230
  28. COREG [Concomitant]
     Dosage: 6.25 MG,DISPENSED
     Dates: start: 20051012
  29. LOVASTATIN [Concomitant]
     Dates: start: 20050404
  30. SEROQUEL [Suspect]
     Indication: BIPOLAR DISORDER
     Route: 048
     Dates: start: 20000101
  31. ZYPREXA [Concomitant]
  32. TRAZODONE HYDROCHLORIDE [Concomitant]
     Dosage: 50-100 MG,DISPENSED
     Dates: start: 20050912
  33. SIMVASTATIN [Concomitant]
     Dosage: 40 MG,DISPENSED
     Dates: start: 20071218
  34. KLOR-CON [Concomitant]
     Dosage: M 20 ,DISPENSED
     Dates: start: 20071230
  35. NEXIUM [Concomitant]
     Dates: start: 20050404
  36. HYDROCHLOROTHIAZIDE [Concomitant]
     Dates: start: 20050404

REACTIONS (6)
  - DIABETES MELLITUS [None]
  - HYPERTENSION [None]
  - NAUSEA [None]
  - EMOTIONAL DISORDER [None]
  - VOMITING [None]
  - BLOOD CHOLESTEROL INCREASED [None]
